FAERS Safety Report 15099320 (Version 1)
Quarter: 2018Q3

REPORT INFORMATION
  Report Type: Spontaneous
  Country: ES (occurrence: ES)
  Receive Date: 20180702
  Receipt Date: 20180702
  Transmission Date: 20181010
  Serious: Yes (Hospitalization, Other)
  Sender: FDA-Public Use
  Company Number: ES-SHIRE-ES201822852

PATIENT
  Age: 43 Year
  Sex: Male
  Weight: 77 kg

DRUGS (6)
  1. PREDNISONA [Concomitant]
     Active Substance: PREDNISONE
     Dosage: 30 MG, UNK
     Route: 042
     Dates: start: 20180502, end: 20180508
  2. PREDNISONA [Concomitant]
     Active Substance: PREDNISONE
     Indication: ACUTE BIPHENOTYPIC LEUKAEMIA
     Dosage: 120 MG, UNK
     Route: 042
     Dates: start: 20180411, end: 20180424
  3. DAUNORUBICINA [Concomitant]
     Active Substance: DAUNORUBICIN HYDROCHLORIDE
     Indication: ACUTE BIPHENOTYPIC LEUKAEMIA
     Dosage: 85.95 MG, 1X/WEEK
     Route: 042
     Dates: start: 20180418, end: 20180502
  4. ONCASPAR [Suspect]
     Active Substance: PEGASPARGASE
     Indication: ACUTE BIPHENOTYPIC LEUKAEMIA
     Dosage: 3750 IU, 2000UI/M2 PLUS 15 ; IN TOTAL
     Route: 042
     Dates: start: 20180423, end: 20180423
  5. PREDNISONA [Concomitant]
     Active Substance: PREDNISONE
     Dosage: 60 MG, UNK
     Route: 042
     Dates: start: 20180425, end: 20180501
  6. VINCRISTINA [Concomitant]
     Active Substance: VINCRISTINE
     Indication: ACUTE BIPHENOTYPIC LEUKAEMIA
     Dosage: 2 MG, 1X/WEEK
     Route: 042
     Dates: start: 20180411, end: 20180502

REACTIONS (1)
  - Hepatitis cholestatic [Recovered/Resolved]

NARRATIVE: CASE EVENT DATE: 20180501
